FAERS Safety Report 10349698 (Version 2)
Quarter: 2014Q3

REPORT INFORMATION
  Report Type: Report from Study
  Country: GB (occurrence: GB)
  Receive Date: 20140730
  Receipt Date: 20140808
  Transmission Date: 20150326
  Serious: Yes (Death, Hospitalization)
  Sender: FDA-Public Use
  Company Number: GB-ROCHE-1442564

PATIENT
  Age: 56 Year
  Sex: Female

DRUGS (12)
  1. RITUXIMAB [Suspect]
     Active Substance: RITUXIMAB
     Route: 065
     Dates: start: 20110221
  2. PROGRAF [Concomitant]
     Active Substance: TACROLIMUS\TACROLIMUS ANHYDROUS
     Dosage: LAST DOSE PRIOR TO EVENT ONSET : 17/MAY/2011
     Route: 048
  3. NIFEDIPINE. [Concomitant]
     Active Substance: NIFEDIPINE
     Indication: HYPERTENSION
     Dosage: LAST DOSE PRIOR TO EVENT ONSET : 17/MAY/2011
     Route: 048
  4. ATORVASTATIN [Concomitant]
     Active Substance: ATORVASTATIN
     Indication: BLOOD CHOLESTEROL
     Dosage: LAST DOSE PRIOR TO EVENT ONSET : 17/MAY/2011
     Route: 048
  5. COTRIMOXAZOLE [Concomitant]
     Active Substance: SULFAMETHOXAZOLE\TRIMETHOPRIM
     Indication: PROPHYLAXIS
     Dosage: LAST DOSE PRIOR TO EVENT ONSET : 17/MAY/2011
     Route: 048
     Dates: start: 20110221
  6. PREDNISOLONE. [Concomitant]
     Active Substance: PREDNISOLONE
     Dosage: LAST DOSE PRIOR TO EVENT ONSET : 17/MAY/2011
     Route: 048
  7. VALGANCICLOVIR [Concomitant]
     Active Substance: VALGANCICLOVIR
     Dosage: LAST DOSE PRIOR TO EVENT ONSET : 17/MAY/2011
     Route: 048
     Dates: start: 20110506
  8. EPREX [Concomitant]
     Active Substance: ERYTHROPOIETIN
     Indication: ANAEMIA
     Dosage: LAST DOSE PRIOR TO EVENT ONSET : 17/MAY/2011
     Route: 058
  9. IRBESARTAN. [Concomitant]
     Active Substance: IRBESARTAN
     Indication: PROTEINURIA
     Dosage: LAST DOSE PRIOR TO EVENT ONSET : 17/MAY/2011
     Route: 065
  10. RITUXIMAB [Suspect]
     Active Substance: RITUXIMAB
     Indication: PROPHYLAXIS AGAINST TRANSPLANT REJECTION
     Route: 065
     Dates: start: 20110207
  11. OMEPRAZOLE. [Concomitant]
     Active Substance: OMEPRAZOLE
     Dosage: LAST DOSE PRIOR TO EVENT ONSET : 17/MAY/2011
     Route: 048
     Dates: start: 201103
  12. FRUSEMIDE [Concomitant]
     Active Substance: FUROSEMIDE
     Dosage: LAST DOSE PRIOR TO EVENT ONSET : 17/MAY/2011
     Route: 048
     Dates: start: 201103

REACTIONS (1)
  - Dyspnoea [Fatal]

NARRATIVE: CASE EVENT DATE: 20110517
